FAERS Safety Report 4833342-6 (Version None)
Quarter: 2005Q4

REPORT INFORMATION
  Report Type: 
  Country: None (occurrence: None)
  Receive Date: 20051117
  Receipt Date: 20051104
  Transmission Date: 20060501
  Serious: Yes (Death)
  Sender: FDA-Public Use
  Company Number: 2005152085

PATIENT
  Sex: Male

DRUGS (2)
  1. XALATAN [Suspect]
     Indication: ILL-DEFINED DISORDER
  2. XALACOM (LATANOPROST, TIMOLOL) [Suspect]
     Indication: ILL-DEFINED DISORDER
     Dosage: (INTERVAL)

REACTIONS (1)
  - DEATH [None]
